FAERS Safety Report 5255769-3 (Version None)
Quarter: 2007Q1

REPORT INFORMATION
  Report Type: 
  Country: None (occurrence: None)
  Receive Date: 20070305
  Receipt Date: 20070222
  Transmission Date: 20070707
  Serious: Yes (Other)
  Sender: FDA-Public Use
  Company Number: US-PFIZER INC-2007015508

PATIENT
  Sex: Female

DRUGS (3)
  1. LYRICA [Suspect]
     Indication: TRIGEMINAL NEURALGIA
     Route: 048
  2. TEGRETOL [Suspect]
     Indication: TRIGEMINAL NEURALGIA
     Dosage: DAILY DOSE:500MG
  3. SYNTHROID [Concomitant]

REACTIONS (4)
  - BLOOD PRESSURE INCREASED [None]
  - CATARACT [None]
  - EYE DISORDER [None]
  - WEIGHT INCREASED [None]
